APPROVED DRUG PRODUCT: DECITABINE
Active Ingredient: DECITABINE
Strength: 50MG/VIAL
Dosage Form/Route: INJECTABLE;INTRAVENOUS
Application: A215355 | Product #001 | TE Code: AP
Applicant: HETERO LABS LTD UNIT VI
Approved: May 10, 2024 | RLD: No | RS: No | Type: RX